FAERS Safety Report 6247930-6 (Version None)
Quarter: 2009Q2

REPORT INFORMATION
  Report Type: 
  Country: None (occurrence: None)
  Receive Date: 20090626
  Receipt Date: 20090623
  Transmission Date: 20091009
  Serious: Yes (Hospitalization)
  Sender: FDA-Public Use
  Company Number: US-ABBOTT-09P-163-0581387-00

PATIENT
  Sex: Female
  Weight: 53.118 kg

DRUGS (1)
  1. SYNTHROID [Suspect]
     Indication: HYPOTHYROIDISM
     Route: 048
     Dates: start: 19750101

REACTIONS (9)
  - BODY TEMPERATURE INCREASED [None]
  - BRONCHITIS [None]
  - CELLULITIS [None]
  - COUGH [None]
  - EPISTAXIS [None]
  - FUNGAL INFECTION [None]
  - OEDEMA PERIPHERAL [None]
  - PNEUMONIA [None]
  - SKIN EXFOLIATION [None]
